FAERS Safety Report 6899845-8 (Version None)
Quarter: 2010Q3

REPORT INFORMATION
  Report Type: 
  Country: None (occurrence: None)
  Receive Date: 20100803
  Receipt Date: 20100723
  Transmission Date: 20110219
  Serious: Yes (Death, Hospitalization)
  Sender: FDA-Public Use
  Company Number: PHEH2009US16218

PATIENT
  Sex: Female
  Weight: 72.562 kg

DRUGS (4)
  1. AFINITOR [Suspect]
     Indication: RENAL CELL CARCINOMA
     Dosage: 10 MG, QD
     Route: 048
     Dates: start: 20090925, end: 20091104
  2. K-DUR [Concomitant]
     Indication: DYSPNOEA
     Dosage: 20 MEQ, QD
     Route: 048
     Dates: start: 20091102
  3. LASIX [Concomitant]
     Dosage: 40 MG, QD
     Route: 048
     Dates: start: 20091102
  4. PREDNISONE [Concomitant]
     Indication: RASH
     Dosage: 20 MG, QD
     Route: 048
     Dates: start: 20091019

REACTIONS (3)
  - DEATH [None]
  - DYSPNOEA [None]
  - PNEUMONITIS [None]
